FAERS Safety Report 4826475-1 (Version None)
Quarter: 2005Q4

REPORT INFORMATION
  Report Type: 
  Country: None (occurrence: None)
  Receive Date: 20051111
  Receipt Date: 20041125
  Transmission Date: 20060501
  Serious: Yes (Death, Hospitalization)
  Sender: FDA-Public Use
  Company Number: BR-BOEHRINGER INGELHEIM PHARMACEUTICALS, INC.-2005-BP-19812PF

PATIENT
  Sex: Male

DRUGS (3)
  1. MIRAPEX [Suspect]
     Indication: PARKINSON'S DISEASE
     Route: 048
     Dates: start: 20020912, end: 20041101
  2. VENOSTASIN [Concomitant]
     Route: 065
  3. FINALTERIDE [Concomitant]

REACTIONS (5)
  - ABASIA [None]
  - DYSPNOEA [None]
  - INSOMNIA [None]
  - MUSCLE RIGIDITY [None]
  - SEPSIS [None]
